FAERS Safety Report 13748944 (Version 1)
Quarter: 2017Q3

REPORT INFORMATION
  Report Type: Spontaneous
  Country: US (occurrence: US)
  Receive Date: 20170713
  Receipt Date: 20170713
  Transmission Date: 20171127
  Serious: Yes (Other)
  Sender: FDA-Public Use
  Company Number: US-BRISTOL-MYERS SQUIBB COMPANY-BMS-2017-062442

PATIENT
  Age: 39 Year
  Sex: Male

DRUGS (1)
  1. WARFARIN SODIUM. [Suspect]
     Active Substance: WARFARIN SODIUM
     Indication: CARDIAC DISORDER
     Route: 065

REACTIONS (4)
  - Haemorrhage [Unknown]
  - Hydrocephalus [Unknown]
  - Surgery [Unknown]
  - Ventriculo-peritoneal shunt [Unknown]
